FAERS Safety Report 7328842-3 (Version None)
Quarter: 2011Q1

REPORT INFORMATION
  Report Type: 
  Country: None (occurrence: None)
  Receive Date: 20110303
  Receipt Date: 20110301
  Transmission Date: 20110831
  Serious: Yes (Hospitalization)
  Sender: FDA-Public Use
  Company Number: IT-ROCHE-760627

PATIENT
  Sex: Female

DRUGS (1)
  1. ROCEPHIN [Suspect]
     Indication: BRONCHITIS
     Dosage: FREQUENCY: DAILY
     Route: 030
     Dates: start: 20110108, end: 20110128

REACTIONS (3)
  - ERYTHEMA [None]
  - BRONCHOSTENOSIS [None]
  - PRURITUS [None]
